FAERS Safety Report 9238091 (Version 3)
Quarter: 2013Q3

REPORT INFORMATION
  Report Type: Spontaneous
  Country: GB (occurrence: GB)
  Receive Date: 20130418
  Receipt Date: 20130711
  Transmission Date: 20140515
  Serious: Yes (Hospitalization, Other)
  Sender: FDA-Public Use
  Company Number: GB-JNJFOC-20130408254

PATIENT
  Sex: Male

DRUGS (8)
  1. STELARA [Suspect]
     Indication: PUSTULAR PSORIASIS
     Route: 058
  2. STELARA [Suspect]
     Indication: PUSTULAR PSORIASIS
     Route: 058
  3. CREON [Concomitant]
     Indication: PANCREATIC INSUFFICIENCY
     Dosage: 20,600 (UNITS UNSPECIFIED) 3 WITH MEALS
     Route: 065
     Dates: start: 2011
  4. OMEPRAZOLE [Concomitant]
     Indication: ANTACID THERAPY
     Dosage: 20,600 (UNITS UNSPECIFIED) 3 WITH MEALS
     Route: 065
     Dates: start: 2011
  5. PAROXETINE [Concomitant]
     Indication: DEPRESSION
     Dosage: 20,600 (UNITS UNSPECIFIED) 3 WITH MEALS
     Route: 065
     Dates: start: 2011
  6. CHOLESTAGEL [Concomitant]
     Indication: PRODUCT USED FOR UNKNOWN INDICATION
     Route: 048
  7. METHOTREXATE [Concomitant]
     Indication: CROHN^S DISEASE
     Route: 065
     Dates: start: 2012
  8. FOLIC ACID [Concomitant]
     Indication: CROHN^S DISEASE
     Route: 065

REACTIONS (5)
  - Crohn^s disease [Not Recovered/Not Resolved]
  - Liver disorder [Recovering/Resolving]
  - Pancreatic disorder [Not Recovered/Not Resolved]
  - Drug ineffective [Unknown]
  - Off label use [Unknown]
